FAERS Safety Report 5142120-2 (Version None)
Quarter: 2006Q4

REPORT INFORMATION
  Report Type: 
  Country: None (occurrence: None)
  Receive Date: 20061030
  Receipt Date: 20061030
  Transmission Date: 20070319
  Serious: No
  Sender: FDA-Public Use
  Company Number: None

PATIENT

DRUGS (3)
  1. DILAUDID-HP [Suspect]
     Indication: DRUG THERAPY
     Dosage: 300 MG/30ML  IV
     Route: 042
  2. DILAUDID-HP [Suspect]
     Indication: SICKLE CELL ANAEMIA
     Dosage: 300 MG/30ML  IV
     Route: 042
  3. PCA3 PUMP [Suspect]

REACTIONS (2)
  - INCORRECT DOSE ADMINISTERED [None]
  - MEDICATION ERROR [None]
